FAERS Safety Report 7208416-5 (Version None)
Quarter: 2011Q1

REPORT INFORMATION
  Report Type: 
  Country: None (occurrence: None)
  Receive Date: 20110104
  Receipt Date: 20101224
  Transmission Date: 20110831
  Serious: Yes (Hospitalization)
  Sender: FDA-Public Use
  Company Number: FR-ELI_LILLY_AND_COMPANY-FR201012006043

PATIENT
  Sex: Female

DRUGS (9)
  1. ZOLOFT [Concomitant]
     Indication: DEPRESSION
     Dosage: 25 MG, DAILY (1/D)
     Route: 048
     Dates: start: 20100727, end: 20100814
  2. ZOLOFT [Concomitant]
     Dosage: 50 MG, DAILY (1/D)
     Route: 048
     Dates: start: 20100815
  3. HUMALOG [Suspect]
     Dosage: 7 U, OTHER
     Route: 058
     Dates: start: 20080401
  4. LEVEMIR [Concomitant]
     Indication: TYPE 1 DIABETES MELLITUS
     Dosage: 20 U, EACH EVENING
     Dates: start: 20100605, end: 20101001
  5. HUMALOG [Suspect]
     Dosage: 2 U, OTHER
     Route: 058
     Dates: start: 20080401
  6. LEVEMIR [Concomitant]
     Dosage: 13 U, DAILY (1/D)
     Route: 058
     Dates: start: 20101101
  7. HUMALOG [Suspect]
     Dosage: 5 U, OTHER
     Route: 058
     Dates: start: 20080401
  8. LEVEMIR [Concomitant]
     Dosage: 18 D/F, EACH EVENING
     Route: 058
     Dates: start: 20101001, end: 20101101
  9. HUMALOG [Suspect]
     Indication: TYPE 1 DIABETES MELLITUS
     Dosage: 9 D/F, EACH MORNING
     Route: 058
     Dates: start: 20080401

REACTIONS (6)
  - BLOOD GLUCOSE FLUCTUATION [None]
  - HOSPITALISATION [None]
  - WEIGHT DECREASED [None]
  - TREATMENT NONCOMPLIANCE [None]
  - GLYCOSYLATED HAEMOGLOBIN INCREASED [None]
  - HYPOGLYCAEMIA [None]
